FAERS Safety Report 6156993-8 (Version None)
Quarter: 2009Q2

REPORT INFORMATION
  Report Type: 
  Country: None (occurrence: None)
  Receive Date: 20090413
  Receipt Date: 20090413
  Transmission Date: 20091009
  Serious: Yes (Disabling)
  Sender: FDA-Public Use
  Company Number: None

PATIENT
  Age: 40 Year
  Sex: Female
  Weight: 63.5036 kg

DRUGS (4)
  1. TOBRAMYCIN [Suspect]
     Indication: PSEUDOMONAS INFECTION
     Dosage: 100 MG EVERY 8 HOURS IV
     Route: 042
     Dates: start: 20090325, end: 20090411
  2. ZYVOX [Suspect]
     Indication: STAPHYLOCOCCAL INFECTION
     Dosage: 600 MG EVERY 12 HOURS PO
     Route: 048
     Dates: start: 20090401, end: 20090411
  3. SODIUM CHLORIDE INJ [Concomitant]
  4. HEPARIN LOCK-FLUSH [Concomitant]

REACTIONS (9)
  - ANOREXIA [None]
  - DEHYDRATION [None]
  - DYSPNOEA [None]
  - FATIGUE [None]
  - HEADACHE [None]
  - MYALGIA [None]
  - NAUSEA [None]
  - REBOUND EFFECT [None]
  - TINNITUS [None]
